FAERS Safety Report 8084540-2 (Version None)
Quarter: 2012Q1

REPORT INFORMATION
  Report Type: 
  Country: None (occurrence: None)
  Receive Date: 20120128
  Receipt Date: 20110331
  Transmission Date: 20120608
  Serious: No
  Sender: FDA-Public Use
  Company Number: US-ABBOTT-11P-163-0716490-00

PATIENT
  Age: 34 Year
  Sex: Female
  Weight: 64.922 kg

DRUGS (2)
  1. HUMIRA [Suspect]
     Indication: CROHN'S DISEASE
     Dates: start: 20110327
  2. CIPROFLOXACIN [Concomitant]
     Indication: POUCHITIS
     Dates: start: 20050101

REACTIONS (6)
  - INJECTION SITE HAEMATOMA [None]
  - INJECTION SITE ERYTHEMA [None]
  - PALPITATIONS [None]
  - INJECTION SITE SWELLING [None]
  - HEADACHE [None]
  - FEELING JITTERY [None]
